FAERS Safety Report 18257392 (Version 1)
Quarter: 2020Q3

REPORT INFORMATION
  Report Type: Spontaneous
  Country: None (occurrence: US)
  Receive Date: 20200504
  Receipt Date: 20200504
  Transmission Date: 20201103
  Serious: Yes (Other)
  Sender: FDA-Public Use
  Company Number: None

PATIENT
  Age: 6 Decade
  Sex: Male

DRUGS (2)
  1. ARBIDOL [Suspect]
     Active Substance: UMIFENOVIR
     Route: 048
  2. LOPINAVIR?RITONAVIR [Suspect]
     Active Substance: LOPINAVIR\RITONAVIR
     Indication: COVID-19
     Dosage: 200MG?50MG

REACTIONS (5)
  - Product use in unapproved indication [None]
  - Decreased appetite [None]
  - Cough [None]
  - Pyrexia [None]
  - Diarrhoea [None]
